FAERS Safety Report 4772422-0 (Version None)
Quarter: 2005Q3

REPORT INFORMATION
  Report Type: 
  Country: None (occurrence: None)
  Receive Date: 20050919
  Receipt Date: 20050907
  Transmission Date: 20060218
  Serious: Yes (Death, Other)
  Sender: FDA-Public Use
  Company Number: JP-JNJFOC-20050900277

PATIENT
  Sex: Male
  Weight: 42 kg

DRUGS (5)
  1. REMICADE [Suspect]
     Route: 042
  2. REMICADE [Suspect]
     Indication: CROHN'S DISEASE
     Route: 042
  3. PREDONINE [Suspect]
     Indication: CROHN'S DISEASE
     Dosage: 10 TO 40 MG
     Route: 048
  4. LEUKERIN [Suspect]
     Indication: CROHN'S DISEASE
     Route: 048
  5. CRAVIT [Concomitant]
     Indication: CROHN'S DISEASE
     Route: 048

REACTIONS (7)
  - DRUG DEPENDENCE [None]
  - HYPOALBUMINAEMIA [None]
  - PERIANAL ABSCESS [None]
  - PLEURAL EFFUSION [None]
  - PNEUMONIA [None]
  - PNEUMOTHORAX [None]
  - THERAPEUTIC RESPONSE DECREASED [None]
